FAERS Safety Report 25881602 (Version 1)
Quarter: 2025Q4

REPORT INFORMATION
  Report Type: Spontaneous
  Country: GB (occurrence: GB)
  Receive Date: 20251005
  Receipt Date: 20251005
  Transmission Date: 20260117
  Serious: Yes (Other)
  Sender: AUROBINDO
  Company Number: GB-MHRA-MED-202509241203098740-KCQWZ

PATIENT
  Age: 67 Year
  Sex: Male

DRUGS (1)
  1. ATORVASTATIN [Suspect]
     Active Substance: ATORVASTATIN
     Indication: Hypercholesterolaemia
     Dosage: 20MG AT NIGHT
     Route: 065

REACTIONS (2)
  - Abnormal dreams [Recovered/Resolved]
  - Sleep disorder [Recovering/Resolving]
